FAERS Safety Report 10010033 (Version 2)
Quarter: 2014Q1

REPORT INFORMATION
  Report Type: Spontaneous
  Country: US (occurrence: US)
  Receive Date: 20140312
  Receipt Date: 20140312
  Transmission Date: 20141002
  Serious: No
  Sender: FDA-Public Use
  Company Number: US-INCYTE CORPORATION-2013IN000380

PATIENT
  Sex: Male
  Weight: 84.44 kg

DRUGS (10)
  1. JAKAFI [Suspect]
     Indication: MYELOFIBROSIS
     Dosage: 10 MG, BID
     Route: 048
     Dates: start: 201307
  2. JAKAFI [Suspect]
     Dosage: NOT SPECIFIED
     Dates: start: 20130222
  3. LEVOTHYROXINE [Concomitant]
  4. ISOSORBIDE [Concomitant]
  5. BUPROPION [Concomitant]
  6. FLOMAX [Concomitant]
  7. CARVEDILOL [Concomitant]
  8. DESYREL [Concomitant]
  9. LOSARTAN [Concomitant]
  10. PLAVIX [Concomitant]

REACTIONS (2)
  - Splenomegaly [Unknown]
  - Drug dose omission [Unknown]
